FAERS Safety Report 21910503 (Version 3)
Quarter: 2023Q4

REPORT INFORMATION
  Report Type: Spontaneous
  Country: US (occurrence: US)
  Receive Date: 20230125
  Receipt Date: 20231109
  Transmission Date: 20240109
  Serious: Yes (Other)
  Sender: FDA-Public Use
  Company Number: US-JNJFOC-20230147366

PATIENT
  Age: 3 Year
  Sex: Male

DRUGS (9)
  1. TYLENOL REGULAR STRENGTH [Suspect]
     Active Substance: ACETAMINOPHEN
     Indication: Back pain
     Dosage: MOTHER TOOK 325 MG TABLET IN ALL TRIMESTER, MORE THAN 7 TIMES A WEEK, EVERY DAY MULTIPLE TIMES A DAY
     Route: 064
     Dates: start: 201612, end: 201709
  2. TYLENOL REGULAR STRENGTH [Suspect]
     Active Substance: ACETAMINOPHEN
     Indication: Illness
  3. TYLENOL REGULAR STRENGTH [Suspect]
     Active Substance: ACETAMINOPHEN
     Indication: Pain
  4. TYLENOL EXTRA STRENGTH [Suspect]
     Active Substance: ACETAMINOPHEN
     Indication: Back pain
     Dosage: MOTHER TOOK 500 MG TABLET IN ALL TRIMESTER, MORE THAN 7 TIMES A WEEK, EVERY DAY MULTIPLE TIMES A DAY
     Route: 064
     Dates: start: 201612, end: 201709
  5. TYLENOL EXTRA STRENGTH [Suspect]
     Active Substance: ACETAMINOPHEN
     Indication: Illness
  6. TYLENOL EXTRA STRENGTH [Suspect]
     Active Substance: ACETAMINOPHEN
     Indication: Pain
  7. ACETAMINOPHEN [Suspect]
     Active Substance: ACETAMINOPHEN
     Indication: Back pain
     Dosage: MOTHER TOOK 325 MG TABLET IN ALL TRIMESTER, MORE THAN 7 TIMES A WEEK, EVERY DAY MULTIPLE TIMES A DAY
     Route: 064
     Dates: start: 201612, end: 201709
  8. ACETAMINOPHEN [Suspect]
     Active Substance: ACETAMINOPHEN
     Indication: Illness
  9. ACETAMINOPHEN [Suspect]
     Active Substance: ACETAMINOPHEN
     Indication: Pain

REACTIONS (2)
  - Autism spectrum disorder [Unknown]
  - Foetal exposure during pregnancy [Unknown]

NARRATIVE: CASE EVENT DATE: 20210115
